FAERS Safety Report 7217453-6 (Version None)
Quarter: 2011Q1

REPORT INFORMATION
  Report Type: 
  Country: None (occurrence: None)
  Receive Date: 20110110
  Receipt Date: 20110106
  Transmission Date: 20110831
  Serious: Yes (Life-Threatening, Hospitalization)
  Sender: FDA-Public Use
  Company Number: PHHY2011CA00948

PATIENT
  Sex: Male

DRUGS (1)
  1. EXJADE [Suspect]
     Indication: MYELOFIBROSIS
     Dosage: 1500 MG, DAILY
     Route: 048
     Dates: start: 20100101

REACTIONS (2)
  - TERMINAL STATE [None]
  - GASTROINTESTINAL HAEMORRHAGE [None]
